FAERS Safety Report 4332291-X (Version None)
Quarter: 2004Q1

REPORT INFORMATION
  Report Type: 
  Country: None (occurrence: None)
  Receive Date: 20040331
  Receipt Date: 20040323
  Transmission Date: 20041129
  Serious: Yes (Disabling)
  Sender: FDA-Public Use
  Company Number: 2004202302GB

PATIENT
  Age: 49 Year
  Sex: Male
  Weight: 120 kg

DRUGS (1)
  1. DETRUSITOL XL (TOLTERODINE) CAPSULE, PROLONGED RELEASE [Suspect]
     Indication: POLLAKIURIA
     Dosage: 4 MG, QD, ORAL
     Route: 048
     Dates: start: 20030901

REACTIONS (1)
  - TREMOR [None]
